FAERS Safety Report 8336840-6 (Version None)
Quarter: 2012Q2

REPORT INFORMATION
  Report Type: 
  Country: None (occurrence: None)
  Receive Date: 20120504
  Receipt Date: 20120424
  Transmission Date: 20120825
  Serious: Yes (Hospitalization)
  Sender: FDA-Public Use
  Company Number: CA-SANOFI-AVENTIS-2010SA051832

PATIENT
  Age: 70 Year
  Sex: Female
  Weight: 68 kg

DRUGS (12)
  1. SLOW-K [Concomitant]
     Dosage: DOSE:1 UNIT(S)
     Route: 048
  2. DILTIAZEM [Concomitant]
     Route: 048
  3. WARFARIN SODIUM [Concomitant]
     Route: 048
  4. ALTACE [Concomitant]
     Route: 048
  5. ATORVASTATIN CALCIUM [Concomitant]
     Route: 048
  6. LASIX [Concomitant]
     Route: 048
  7. DRONEDARONE HCL [Suspect]
     Route: 048
     Dates: start: 20100823, end: 20100827
  8. COLACE [Concomitant]
     Route: 048
  9. BLINDED THERAPY [Suspect]
     Route: 048
     Dates: start: 20100818, end: 20100822
  10. LEVOTHYROXINE SODIUM [Concomitant]
     Route: 048
  11. METOPROLOL TARTRATE [Concomitant]
     Route: 048
  12. ASPIRIN [Concomitant]
     Route: 048

REACTIONS (2)
  - CARDIAC FAILURE CONGESTIVE [None]
  - SYNCOPE [None]
